FAERS Safety Report 5845127-2 (Version None)
Quarter: 2008Q3

REPORT INFORMATION
  Report Type: 
  Country: None (occurrence: None)
  Receive Date: 20080813
  Receipt Date: 20080813
  Transmission Date: 20090109
  Serious: Yes (Other)
  Sender: FDA-Public Use
  Company Number: None

PATIENT
  Age: 38 Year
  Sex: Female
  Weight: 61.2356 kg

DRUGS (1)
  1. CENESTIN [Suspect]
     Indication: ARTIFICIAL MENOPAUSE
     Dosage: 1 PILL PER DAY
     Dates: start: 20080807, end: 20080812

REACTIONS (3)
  - DIARRHOEA [None]
  - REACTION TO DRUG EXCIPIENTS [None]
  - STOMACH DISCOMFORT [None]
